FAERS Safety Report 5584108-3 (Version None)
Quarter: 2008Q1

REPORT INFORMATION
  Report Type: 
  Country: None (occurrence: None)
  Receive Date: 20080103
  Receipt Date: 20071219
  Transmission Date: 20080703
  Serious: Yes (Other)
  Sender: FDA-Public Use
  Company Number: 230738J07USA

PATIENT
  Age: 49 Year
  Sex: Female

DRUGS (7)
  1. REBIF [Suspect]
     Indication: MULTIPLE SCLEROSIS
     Dosage: 44 MCG, 3 IN 1 WEEKS, SUBCUTANEOUS; 44 MCG, 3 IN 1 WEEKS, SUBCUTANEOUS
     Route: 058
     Dates: start: 20020801, end: 20041201
  2. REBIF [Suspect]
     Indication: MULTIPLE SCLEROSIS
     Dosage: 44 MCG, 3 IN 1 WEEKS, SUBCUTANEOUS; 44 MCG, 3 IN 1 WEEKS, SUBCUTANEOUS
     Route: 058
     Dates: start: 20070710
  3. METFORMIN (METFORMIN/ 00082701/) [Concomitant]
  4. ACTOS [Concomitant]
  5. CYMBALTA [Concomitant]
  6. TOPAMAX [Concomitant]
  7. NEURONTIN [Concomitant]

REACTIONS (3)
  - DIABETES MELLITUS [None]
  - LABILE HYPERTENSION [None]
  - PHAEOCHROMOCYTOMA [None]
